FAERS Safety Report 7933408-8 (Version None)
Quarter: 2011Q4

REPORT INFORMATION
  Report Type: 
  Country: None (occurrence: None)
  Receive Date: 20111122
  Receipt Date: 20111122
  Transmission Date: 20120403
  Serious: No
  Sender: FDA-Public Use
  Company Number: None

PATIENT
  Age: 33 Year
  Sex: Male
  Weight: 67.585 kg

DRUGS (1)
  1. PROPECIA [Suspect]
     Indication: ALOPECIA
     Dosage: 5MG
     Route: 048

REACTIONS (4)
  - VITREOUS FLOATERS [None]
  - LOSS OF LIBIDO [None]
  - ADVERSE DRUG REACTION [None]
  - QUALITY OF LIFE DECREASED [None]
